FAERS Safety Report 8461509-7 (Version None)
Quarter: 2012Q2

REPORT INFORMATION
  Report Type: 
  Country: None (occurrence: None)
  Receive Date: 20120625
  Receipt Date: 20120614
  Transmission Date: 20120825
  Serious: Yes (Life-Threatening, Hospitalization)
  Sender: FDA-Public Use
  Company Number: PL-MILLENNIUM PHARMACEUTICALS, INC.-2012-02895

PATIENT

DRUGS (3)
  1. DEXAMETHASONE [Concomitant]
     Dosage: UNK
     Dates: end: 20110320
  2. DOXORUBICIN HCL [Concomitant]
     Dosage: UNK
     Dates: end: 20110320
  3. VELCADE [Suspect]
     Indication: MULTIPLE MYELOMA
     Dosage: 2 MG, UNK
     Route: 065
     Dates: end: 20110310

REACTIONS (2)
  - H1N1 INFLUENZA [None]
  - PNEUMONIA [None]
